FAERS Safety Report 12914155 (Version 1)
Quarter: 2016Q4

REPORT INFORMATION
  Report Type: Spontaneous
  Country: GB (occurrence: GB)
  Receive Date: 20161106
  Receipt Date: 20161106
  Transmission Date: 20170207
  Serious: Yes (Other)
  Sender: FDA-Public Use
  Company Number: GB-DEXPHARM-20162148

PATIENT
  Age: 67 Year
  Sex: Male
  Weight: 80 kg

DRUGS (22)
  1. OMEPRAZOLE. [Suspect]
     Active Substance: OMEPRAZOLE
     Dates: start: 20160118
  2. ALFACALCIDOL [Concomitant]
     Active Substance: ALFACALCIDOL
     Dosage: TAKE 4 DAILY AS PER ADVICE FROM RENAL CLINIC
     Dates: start: 20160418
  3. CABERGOLINE. [Concomitant]
     Active Substance: CABERGOLINE
     Dosage: 8AM AND 6PM
     Dates: start: 20160809, end: 20160822
  4. TRAMADOL. [Concomitant]
     Active Substance: TRAMADOL
     Dosage: THREE TIMES A DAY.
     Dates: start: 20160908, end: 20160918
  5. EMLA [Concomitant]
     Active Substance: LIDOCAINE\PRILOCAINE
     Dosage: APPLY AS DIRECTED
     Route: 061
     Dates: start: 20160118
  6. HYDROXOCOBALAMIN [Concomitant]
     Active Substance: HYDROXOCOBALAMIN
     Dosage: DAILY DOSE: 1 DF DOSAGE FORM EVERY 3 MONTHS
     Route: 030
     Dates: start: 20150907
  7. SITAGLIPTIN [Concomitant]
     Active Substance: SITAGLIPTIN
     Dosage: DAILY DOSE: 1 DF DOSAGE FORM EVERY DAYS
     Dates: start: 20160118
  8. BISOPROLOL [Concomitant]
     Active Substance: BISOPROLOL
     Dosage: DAILY DOSE: 1 DF DOSAGE FORM EVERY DAYS
     Dates: start: 20160118
  9. CETRABEN EMOLLIENT [Concomitant]
     Dosage: APPLY
     Dates: start: 20141212
  10. ALLOPURINOL. [Concomitant]
     Active Substance: ALLOPURINOL
     Dosage: DAILY DOSE: 1 DF DOSAGE FORM EVERY DAYS
     Dates: start: 20160822
  11. LANTHANUM CARBONATE. [Concomitant]
     Active Substance: LANTHANUM CARBONATE
     Dosage: DAILY DOSE: 3 DF DOSAGE FORM EVERY DAYS
     Dates: start: 20160809
  12. NIFEDIPRESS MR [Concomitant]
     Dosage: NOT ON DIALYSIS DAY
     Dates: start: 20160822
  13. QUININE [Concomitant]
     Active Substance: QUININE
     Indication: RESTLESS LEGS SYNDROME
     Dosage: AT NIGHT.
     Dates: start: 20160809
  14. RANITIDINE. [Concomitant]
     Active Substance: RANITIDINE
     Indication: DYSPEPSIA
     Dosage: DAILY DOSE: 1 DF DOSAGE FORM EVERY 3 DAYS
     Route: 048
     Dates: start: 20160118, end: 20160822
  15. SODIUM BICARBONATE. [Concomitant]
     Active Substance: SODIUM BICARBONATE
     Dosage: BY DIABETES MELLITUS CLINIC JUNE 2015
     Dates: start: 20150206
  16. SILDENAFIL. [Concomitant]
     Active Substance: SILDENAFIL
     Dosage: USE AS DIRECTED
     Dates: start: 20161005
  17. CLOPIDOGREL [Concomitant]
     Active Substance: CLOPIDOGREL BISULFATE
     Dosage: DAILY DOSE: 1 DF DOSAGE FORM EVERY DAYS
     Dates: start: 20160418
  18. GAVISCON [Concomitant]
     Active Substance: ALUMINUM HYDROXIDE\MAGNESIUM CARBONATE
     Dosage: AS DIRECTED
     Dates: start: 20161010
  19. ADALAT [Concomitant]
     Active Substance: NIFEDIPINE
     Dosage: DAILY DOSE: 2 DF DOSAGE FORM EVERY DAYS
     Dates: start: 20160118, end: 20160815
  20. ATORVASTATIN [Concomitant]
     Active Substance: ATORVASTATIN
     Dosage: DAILY DOSE: 1 DF DOSAGE FORM EVERY DAYS
     Dates: start: 20160624
  21. DIAZEPAM. [Concomitant]
     Active Substance: DIAZEPAM
     Dosage: DAILY DOSE: 2 DF DOSAGE FORM EVERY DAYS
     Route: 048
     Dates: start: 20160822
  22. PARACETAMOL [Concomitant]
     Active Substance: ACETAMINOPHEN
     Dosage: TAKE 1 OR 2 4 TIMES A DAY
     Dates: start: 20160118

REACTIONS (1)
  - Gynaecomastia [Not Recovered/Not Resolved]

NARRATIVE: CASE EVENT DATE: 20160901
